FAERS Safety Report 5010111-8 (Version None)
Quarter: 2006Q2

REPORT INFORMATION
  Report Type: 
  Country: None (occurrence: None)
  Receive Date: 20060404
  Receipt Date: 20051118
  Transmission Date: 20061013
  Serious: No
  Sender: FDA-Public Use
  Company Number: US200511001968

PATIENT
  Age: 54 Year
  Sex: Female

DRUGS (6)
  1. CYMBALTA [Suspect]
     Indication: BONE PAIN
     Dosage: 60 MG, EACH MORNING
     Dates: start: 20051108, end: 20051111
  2. PLAVIX [Concomitant]
  3. SYNTHROID [Concomitant]
  4. VICODIN [Concomitant]
  5. PROTONIX [Concomitant]
  6. COZAAR [Concomitant]

REACTIONS (5)
  - DYSARTHRIA [None]
  - FALL [None]
  - FEELING ABNORMAL [None]
  - HYPERSOMNIA [None]
  - SOMNOLENCE [None]
